FAERS Safety Report 16904696 (Version 1)
Quarter: 2019Q4

REPORT INFORMATION
  Report Type: Spontaneous
  Country: US (occurrence: US)
  Receive Date: 20191010
  Receipt Date: 20191010
  Transmission Date: 20200122
  Serious: Yes (Hospitalization, Other)
  Sender: FDA-Public Use
  Company Number: None

PATIENT
  Age: 64 Year
  Sex: Male
  Weight: 82.8 kg

DRUGS (1)
  1. GABAPENTIN CAPSULE [Suspect]
     Active Substance: GABAPENTIN
     Route: 048

REACTIONS (5)
  - Azotaemia [None]
  - Toxic encephalopathy [None]
  - Intentional product misuse [None]
  - Tremor [None]
  - Dysarthria [None]

NARRATIVE: CASE EVENT DATE: 20190926
